FAERS Safety Report 12841905 (Version 1)
Quarter: 2016Q4

REPORT INFORMATION
  Report Type: Spontaneous
  Country: US (occurrence: US)
  Receive Date: 20161012
  Receipt Date: 20161012
  Transmission Date: 20170207
  Serious: No
  Sender: FDA-Public Use
  Company Number: US-ASTRAZENECA-2016SF04811

PATIENT
  Age: 24850 Day
  Sex: Male
  Weight: 110.2 kg

DRUGS (1)
  1. BRILINTA [Suspect]
     Active Substance: TICAGRELOR
     Indication: STENT PLACEMENT
     Route: 048
     Dates: start: 20160928

REACTIONS (3)
  - Off label use [Unknown]
  - Thermal burn [Unknown]
  - Rash [Unknown]

NARRATIVE: CASE EVENT DATE: 20160929
